FAERS Safety Report 5032002-9 (Version None)
Quarter: 2006Q2

REPORT INFORMATION
  Report Type: 
  Country: None (occurrence: None)
  Receive Date: 20060619
  Receipt Date: 20060608
  Transmission Date: 20061013
  Serious: Yes (Death)
  Sender: FDA-Public Use
  Company Number: HQWYE037708JUN06

PATIENT
  Age: 75 Year
  Sex: Male

DRUGS (1)
  1. CORDARONE [Suspect]
     Indication: ARRHYTHMIA
     Dosage: 200 MG TABLET, ORAL
     Route: 048
     Dates: start: 20050101

REACTIONS (2)
  - ACUTE MYOCARDIAL INFARCTION [None]
  - INTERSTITIAL LUNG DISEASE [None]
